FAERS Safety Report 7496569-3 (Version None)
Quarter: 2011Q2

REPORT INFORMATION
  Report Type: 
  Country: None (occurrence: None)
  Receive Date: 20110523
  Receipt Date: 20110509
  Transmission Date: 20111010
  Serious: Yes (Death)
  Sender: FDA-Public Use
  Company Number: US-ACTELION-A-US2011-48526

PATIENT

DRUGS (3)
  1. VENTAVIS [Suspect]
     Indication: PULMONARY ARTERIAL HYPERTENSION
     Dosage: 5 ?G, 6 XDAY
     Route: 055
     Dates: end: 20110505
  2. REVATIO [Concomitant]
  3. VENTAVIS [Suspect]
     Dosage: UNK ?G, UNK
     Route: 055
     Dates: start: 20090120

REACTIONS (6)
  - MENTAL IMPAIRMENT [None]
  - HYPOXIA [None]
  - OXYGEN SATURATION DECREASED [None]
  - DISEASE PROGRESSION [None]
  - ACUTE RESPIRATORY FAILURE [None]
  - PULMONARY ARTERIAL HYPERTENSION [None]
